FAERS Safety Report 8141250-0 (Version None)
Quarter: 2012Q1

REPORT INFORMATION
  Report Type: 
  Country: None (occurrence: None)
  Receive Date: 20120216
  Receipt Date: 20120210
  Transmission Date: 20120608
  Serious: Yes (Hospitalization)
  Sender: FDA-Public Use
  Company Number: JP-PFIZER INC-2012037388

PATIENT
  Sex: Female

DRUGS (1)
  1. GENOTROPIN [Suspect]
     Dosage: 0.2 MG, DAILY
     Route: 058

REACTIONS (1)
  - FRACTURE [None]
